FAERS Safety Report 15871361 (Version 1)
Quarter: 2019Q1

REPORT INFORMATION
  Report Type: Spontaneous
  Country: US (occurrence: US)
  Receive Date: 20190126
  Receipt Date: 20190126
  Transmission Date: 20190417
  Serious: No
  Sender: FDA-Public Use
  Company Number: US-TEVA-2019-US-995276

PATIENT
  Age: 73 Year
  Sex: Male
  Weight: 83.45 kg

DRUGS (1)
  1. FEXOFENADINE [Suspect]
     Active Substance: FEXOFENADINE\FEXOFENADINE HYDROCHLORIDE
     Indication: HYPERSENSITIVITY
     Dosage: 180 MILLIGRAM DAILY;
     Route: 048
     Dates: end: 20181231

REACTIONS (3)
  - Dry eye [Recovered/Resolved]
  - Nasal dryness [Recovered/Resolved]
  - Product administered to patient of inappropriate age [Unknown]
